FAERS Safety Report 5689128-6 (Version None)
Quarter: 2008Q1

REPORT INFORMATION
  Report Type: 
  Country: None (occurrence: None)
  Receive Date: 20080331
  Receipt Date: 20080326
  Transmission Date: 20080703
  Serious: Yes (Hospitalization)
  Sender: FDA-Public Use
  Company Number: US-MERCK-0803USA04385

PATIENT
  Age: 55 Year
  Sex: Male

DRUGS (6)
  1. ISENTRESS [Suspect]
     Route: 048
     Dates: start: 20080101
  2. VIDEX EC [Concomitant]
     Route: 065
  3. LIPITOR [Concomitant]
     Route: 065
  4. GLYBURIDE [Concomitant]
     Route: 065
  5. FOSINOPRIL SODIUM [Concomitant]
     Route: 065
  6. ASPIRIN [Concomitant]
     Route: 065

REACTIONS (1)
  - CONVULSION [None]
